FAERS Safety Report 14025641 (Version 2)
Quarter: 2018Q1

REPORT INFORMATION
  Report Type: Spontaneous
  Country: US (occurrence: US)
  Receive Date: 20170929
  Receipt Date: 20180118
  Transmission Date: 20180508
  Serious: No
  Sender: FDA-Public Use
  Company Number: US-GLAXOSMITHKLINE-US2017GSK150880

PATIENT
  Sex: Male

DRUGS (1)
  1. ADVAIR DISKUS [Suspect]
     Active Substance: FLUTICASONE PROPIONATE\SALMETEROL XINAFOATE
     Indication: ASTHMA
     Dosage: 1 PUFF(S), BID
     Route: 055
     Dates: start: 2005

REACTIONS (10)
  - Palpitations [Recovered/Resolved]
  - Lip dry [Not Recovered/Not Resolved]
  - Tooth repair [Unknown]
  - Hyperhidrosis [Recovering/Resolving]
  - Dysphonia [Unknown]
  - Dry mouth [Not Recovered/Not Resolved]
  - Dental cleaning [Unknown]
  - Swelling face [Recovered/Resolved]
  - Chest discomfort [Recovered/Resolved]
  - Cough [Recovered/Resolved]

NARRATIVE: CASE EVENT DATE: 2017
